FAERS Safety Report 7000467 (Version 3)
Quarter: 2014Q2

REPORT INFORMATION
  Report Type: Spontaneous
  Country: AT (occurrence: AT)
  Receive Date: 20090522
  Receipt Date: 20140506
  Transmission Date: 20141212
  Serious: Yes (Life-Threatening, Hospitalization, Other)
  Sender: FDA-Public Use
  Company Number: AT-ELI_LILLY_AND_COMPANY-AT200905002343

PATIENT
  Age: 45 Year
  Sex: Male
  Weight: 60 kg

DRUGS (11)
  1. ZYPREXA [Suspect]
     Indication: PRODUCT USED FOR UNKNOWN INDICATION
     Dosage: 30 MG, DAILY (1/D)
     Route: 065
     Dates: start: 20081217, end: 20090418
  2. ZYPREXA VELOTAB [Suspect]
     Indication: PRODUCT USED FOR UNKNOWN INDICATION
     Dosage: 30 MG, UNK
     Route: 065
     Dates: start: 20090421
  3. AKINETON /AUS/ [Suspect]
     Indication: PRODUCT USED FOR UNKNOWN INDICATION
     Dosage: 4 MG, DAILY (1/D)
     Route: 065
     Dates: start: 20081217, end: 20090418
  4. PANTOLOC /01263201/ [Suspect]
     Indication: PRODUCT USED FOR UNKNOWN INDICATION
     Dosage: 20 MG, DAILY (1/D)
     Route: 065
     Dates: start: 20081217, end: 20090418
  5. DEPAKINE CRONO [Concomitant]
     Dosage: 1000 MG, DAILY (1/D)
     Dates: start: 20081217, end: 20090418
  6. DEPAKINE CRONO [Concomitant]
     Dosage: 1000 MG, DAILY (1/D)
     Dates: start: 20090421
  7. ALPRAZOLAM [Concomitant]
     Dosage: 1 MG, DAILY (1/D)
     Dates: start: 20081217, end: 20090418
  8. DOMINAL FORTE [Concomitant]
     Dosage: 80 MG, DAILY (1/D)
     Dates: start: 20081217, end: 20090418
  9. DOMINAL FORTE [Concomitant]
     Dosage: 80 MG, DAILY (1/D)
     Dates: start: 20090420
  10. LOVENOX [Concomitant]
     Dosage: 40 MG, UNK
     Dates: start: 20090418, end: 20090501
  11. NORVASC [Concomitant]
     Dosage: 5 MG, UNK
     Dates: start: 20090420

REACTIONS (19)
  - Electrolyte imbalance [Recovered/Resolved]
  - Status epilepticus [Recovered/Resolved]
  - Urine output increased [Recovered/Resolved]
  - Convulsion [Recovered/Resolved]
  - Delirium [Recovered/Resolved]
  - Overdose [Not Recovered/Not Resolved]
  - Blood glucose increased [None]
  - Blood sodium decreased [None]
  - Blood chloride decreased [None]
  - Blood osmolarity decreased [None]
  - Blood alkaline phosphatase increased [None]
  - Blood pressure increased [None]
  - Heart rate increased [None]
  - Body temperature increased [None]
  - Blood creatine phosphokinase increased [None]
  - Dehydration [None]
  - Aspartate aminotransferase increased [None]
  - Glutamate dehydrogenase increased [None]
  - Blood potassium decreased [None]
